FAERS Safety Report 18811848 (Version 2)
Quarter: 2021Q1

REPORT INFORMATION
  Report Type: Spontaneous
  Country: FR (occurrence: FR)
  Receive Date: 20210129
  Receipt Date: 20210205
  Transmission Date: 20210419
  Serious: Yes (Hospitalization, Other)
  Sender: FDA-Public Use
  Company Number: FR-PFIZER INC-2021065334

PATIENT
  Age: 65 Year
  Sex: Male

DRUGS (3)
  1. POSACONAZOLE [Suspect]
     Active Substance: POSACONAZOLE
     Indication: ANTIFUNGAL TREATMENT
     Dosage: UNK
  2. TAZOCILLINE [Suspect]
     Active Substance: PIPERACILLIN SODIUM\TAZOBACTAM SODIUM
     Indication: ANTIBIOTIC THERAPY
     Dosage: UNK
  3. GILTERITINIB [Suspect]
     Active Substance: GILTERITINIB
     Indication: ACUTE LEUKAEMIA
     Dosage: 120 MG, 1X/DAY
     Route: 048
     Dates: start: 20201127

REACTIONS (3)
  - Interstitial lung disease [Unknown]
  - C-reactive protein increased [Unknown]
  - Inflammation [Unknown]

NARRATIVE: CASE EVENT DATE: 20201230
